FAERS Safety Report 20196121 (Version 2)
Quarter: 2021Q4

REPORT INFORMATION
  Report Type: Spontaneous
  Country: US (occurrence: US)
  Receive Date: 20211216
  Receipt Date: 20211231
  Transmission Date: 20220303
  Serious: Yes (Life-Threatening, Hospitalization)
  Sender: FDA-Public Use
  Company Number: US-TEVA-2021-US-1986940

PATIENT
  Age: 15 Month
  Sex: Female

DRUGS (1)
  1. LIDOCAINE\PRILOCAINE [Suspect]
     Active Substance: LIDOCAINE\PRILOCAINE
     Indication: Accidental exposure to product by child
     Dosage: UNCLEAR HOW MUCH AMOUNT OF CREAM SHE HAD INGESTED
     Route: 048

REACTIONS (8)
  - Local anaesthetic systemic toxicity [Recovered/Resolved]
  - Status epilepticus [Recovered/Resolved]
  - Methaemoglobinaemia [Recovered/Resolved]
  - Respiratory failure [Recovered/Resolved]
  - Generalised tonic-clonic seizure [Recovered/Resolved]
  - Non-cardiogenic pulmonary oedema [Recovered/Resolved]
  - Atelectasis [Recovered/Resolved]
  - Accidental exposure to product by child [Recovered/Resolved]
